FAERS Safety Report 4317709-0 (Version None)
Quarter: 2004Q1

REPORT INFORMATION
  Report Type: 
  Country: None (occurrence: None)
  Receive Date: 20040315
  Receipt Date: 20040308
  Transmission Date: 20041129
  Serious: Yes (Death)
  Sender: FDA-Public Use
  Company Number: PHEH2004US02833

PATIENT
  Sex: Male

DRUGS (1)
  1. SANDOSTATIN [Suspect]

REACTIONS (1)
  - DEATH [None]
